FAERS Safety Report 4778098-0 (Version None)
Quarter: 2005Q3

REPORT INFORMATION
  Report Type: 
  Country: None (occurrence: None)
  Receive Date: 20050926
  Receipt Date: 20050913
  Transmission Date: 20060218
  Serious: Yes (Hospitalization)
  Sender: FDA-Public Use
  Company Number: JP-JNJFOC-20050603213

PATIENT
  Sex: Female
  Weight: 38 kg

DRUGS (14)
  1. REMICADE [Suspect]
     Route: 042
  2. REMICADE [Suspect]
     Route: 042
  3. REMICADE [Suspect]
     Indication: CROHN'S DISEASE
     Route: 042
  4. IMURAN [Concomitant]
     Indication: CROHN'S DISEASE
     Route: 048
  5. PENTASA [Concomitant]
     Indication: CROHN'S DISEASE
     Route: 048
  6. LOPEMIN [Concomitant]
     Route: 048
  7. GASLON N [Concomitant]
     Indication: GASTRITIS
     Route: 048
  8. EFFORTIL [Concomitant]
     Route: 048
  9. BIOFERMIN [Concomitant]
     Route: 048
  10. BIOFERMIN [Concomitant]
     Route: 048
  11. BIOFERMIN [Concomitant]
     Route: 048
  12. CINARL [Concomitant]
     Route: 048
  13. TATHION [Concomitant]
     Route: 048
  14. TRANSAMIN [Concomitant]
     Route: 048

REACTIONS (5)
  - BLOOD PRESSURE DECREASED [None]
  - CHEST PAIN [None]
  - CONJUNCTIVAL HYPERAEMIA [None]
  - HEART RATE INCREASED [None]
  - INFUSION RELATED REACTION [None]
